FAERS Safety Report 5580139-8 (Version None)
Quarter: 2007Q4

REPORT INFORMATION
  Report Type: 
  Country: None (occurrence: None)
  Receive Date: 20071227
  Receipt Date: 20071227
  Transmission Date: 20080405
  Serious: Yes (Hospitalization)
  Sender: FDA-Public Use
  Company Number: None

PATIENT
  Age: 51 Year
  Sex: Male
  Weight: 86 kg

DRUGS (4)
  1. ERBITUX [Suspect]
     Indication: TONGUE NEOPLASM MALIGNANT STAGE UNSPECIFIED
     Dosage: 250 MG/M2 ONCE/WEEK IV DRIP
     Route: 041
     Dates: start: 20071029, end: 20071224
  2. CARBOPLATIN [Concomitant]
  3. TAXOL [Concomitant]
  4. RADIATION THERAPY [Concomitant]

REACTIONS (2)
  - CELLULITIS [None]
  - INFECTION [None]
